FAERS Safety Report 9909784 (Version 2)
Quarter: 2014Q2

REPORT INFORMATION
  Report Type: Spontaneous
  Country: US (occurrence: US)
  Receive Date: 20140219
  Receipt Date: 20140421
  Transmission Date: 20141212
  Serious: No
  Sender: FDA-Public Use
  Company Number: US-PFIZER INC-2014046373

PATIENT
  Age: 61 Year
  Sex: Male

DRUGS (6)
  1. LYRICA [Suspect]
     Dosage: 100 MG, 3X/DAY
     Route: 048
  2. TRILIPIX [Concomitant]
     Dosage: 135 MG, UNK
  3. NIASPAN ER [Concomitant]
     Dosage: 1000 MG, UNK
  4. LOVAZA [Concomitant]
     Dosage: 2 G, 2X/DAY
  5. DIOVAN [Concomitant]
     Dosage: 80 MG, DAILY
  6. VYTORIN [Concomitant]
     Dosage: (10/40) DAILY

REACTIONS (1)
  - Pain [Unknown]
